FAERS Safety Report 4774003-1 (Version None)
Quarter: 2005Q3

REPORT INFORMATION
  Report Type: 
  Country: None (occurrence: None)
  Receive Date: 20050920
  Receipt Date: 20050915
  Transmission Date: 20060218
  Serious: Yes (Other)
  Sender: FDA-Public Use
  Company Number: 2005PK01714

PATIENT
  Sex: Male

DRUGS (1)
  1. CASODEX [Suspect]
     Indication: PROSTATE CANCER

REACTIONS (5)
  - DIABETES MELLITUS [None]
  - ERYTHEMA [None]
  - HOT FLUSH [None]
  - PRURITUS [None]
  - SKIN PAPILLOMA [None]
